FAERS Safety Report 10194905 (Version 1)
Quarter: 2014Q2

REPORT INFORMATION
  Report Type: Spontaneous
  Country: US (occurrence: US)
  Receive Date: 20140526
  Receipt Date: 20140526
  Transmission Date: 20141212
  Serious: Yes (Other)
  Sender: FDA-Public Use
  Company Number: US-PFIZER INC-2014140176

PATIENT
  Age: 53 Year
  Sex: Female

DRUGS (3)
  1. PREMPHASE [Suspect]
     Dosage: 0.625 MG OF ESTROGENS CONJUGATED DAILY FOR 14 DAYS, CYCLIC
     Dates: start: 2013
  2. PREMPHASE [Suspect]
     Dosage: 0.625/5.0 MG DAILY OF ESTROGENS CONJUGATED/MEDROXYPROGESTERONE ACETATE FOR THE NEXT 14 DAYS, CYCLIC
     Dates: end: 2013
  3. CELEXA [Concomitant]
     Indication: DEPRESSION
     Dosage: 20 MG, DAILY

REACTIONS (1)
  - Vaginal haemorrhage [Unknown]
